FAERS Safety Report 25641482 (Version 2)
Quarter: 2025Q3

REPORT INFORMATION
  Report Type: Report from Study
  Country: US (occurrence: US)
  Receive Date: 20250804
  Receipt Date: 20250829
  Transmission Date: 20251020
  Serious: No
  Sender: MALLINCKRODT
  Company Number: US-MALLINCKRODT-MNK202504231

PATIENT
  Sex: Male

DRUGS (1)
  1. CORTICOTROPIN [Suspect]
     Active Substance: CORTICOTROPIN
     Indication: Nephritic syndrome

REACTIONS (7)
  - Gait inability [Unknown]
  - Joint lock [Unknown]
  - Nerve injury [Not Recovered/Not Resolved]
  - Asthma [Unknown]
  - Stress [Unknown]
  - Asthenia [Unknown]
  - Swelling [Not Recovered/Not Resolved]
